FAERS Safety Report 7654521-9 (Version None)
Quarter: 2011Q3

REPORT INFORMATION
  Report Type: 
  Country: None (occurrence: None)
  Receive Date: 20110803
  Receipt Date: 20110729
  Transmission Date: 20111222
  Serious: Yes (Hospitalization, Other)
  Sender: FDA-Public Use
  Company Number: US-ABBOTT-11P-163-0842919-00

PATIENT
  Age: 64 Year
  Sex: Male

DRUGS (4)
  1. MIRAPEX [Concomitant]
     Indication: DYSKINESIA
     Dosage: 6- 0.125MG TABS EVERY NIGHT
     Dates: start: 20060101
  2. HUMIRA [Suspect]
     Indication: RHEUMATOID ARTHRITIS
     Route: 058
     Dates: start: 20110301
  3. DOXYCYCLINE [Concomitant]
     Indication: DENTAL DISORDER PROPHYLAXIS
  4. FOLIC ACID [Concomitant]
     Indication: RHEUMATOID ARTHRITIS

REACTIONS (7)
  - MUSCULOSKELETAL DISCOMFORT [None]
  - CHEST PAIN [None]
  - BACK PAIN [None]
  - LUNG DISORDER [None]
  - HYPOPNOEA [None]
  - MUSCULOSKELETAL PAIN [None]
  - NECK PAIN [None]
